FAERS Safety Report 5457467-X (Version None)
Quarter: 2007Q3

REPORT INFORMATION
  Report Type: 
  Country: None (occurrence: None)
  Receive Date: 20070918
  Receipt Date: 20070907
  Transmission Date: 20080115
  Serious: Yes (Death, Life-Threatening, Hospitalization)
  Sender: FDA-Public Use
  Company Number: 0707-597

PATIENT
  Age: 3 Day
  Sex: Female
  Weight: 0.69 kg

DRUGS (5)
  1. CUROSURF [Suspect]
     Indication: NEONATAL RESPIRATORY DISTRESS SYNDROME
     Dosage: ONCE, INH
     Route: 055
     Dates: start: 20060312, end: 20060312
  2. AMPICILLIN [Concomitant]
  3. DOPAMINE HCL [Concomitant]
  4. INSULIN [Concomitant]
  5. GENTAMICIN [Concomitant]

REACTIONS (4)
  - DISSEMINATED INTRAVASCULAR COAGULATION IN NEWBORN [None]
  - HAEMORRHAGE NEONATAL [None]
  - NEONATAL RESPIRATORY FAILURE [None]
  - PULMONARY HAEMORRHAGE [None]
